FAERS Safety Report 5814981-2 (Version None)
Quarter: 2008Q3

REPORT INFORMATION
  Report Type: 
  Country: None (occurrence: None)
  Receive Date: 20080718
  Receipt Date: 20080708
  Transmission Date: 20090109
  Serious: Yes (Death, Other)
  Sender: FDA-Public Use
  Company Number: US-JNJFOC-20080605853

PATIENT
  Age: 61 Year
  Sex: Female

DRUGS (1)
  1. REMICADE [Suspect]
     Indication: RHEUMATOID ARTHRITIS
     Route: 042

REACTIONS (22)
  - ATELECTASIS [None]
  - ATRIAL FIBRILLATION [None]
  - BRAIN OEDEMA [None]
  - CARDIAC FAILURE CONGESTIVE [None]
  - CARDIOMYOPATHY [None]
  - CONFUSIONAL STATE [None]
  - CONVULSION [None]
  - DEATH [None]
  - DISSEMINATED TUBERCULOSIS [None]
  - ELECTROENCEPHALOGRAM ABNORMAL [None]
  - HYDROCEPHALUS [None]
  - LUNG NEOPLASM [None]
  - MENTAL STATUS CHANGES [None]
  - MUCOUS MEMBRANE DISORDER [None]
  - MUSCULOSKELETAL STIFFNESS [None]
  - PERICARDIAL EFFUSION [None]
  - PLEURAL EFFUSION [None]
  - PULMONARY OEDEMA [None]
  - PULMONARY VASCULAR DISORDER [None]
  - RESPIRATORY FAILURE [None]
  - SIMPLE PARTIAL SEIZURES [None]
  - WHITE BLOOD CELL COUNT DECREASED [None]
